FAERS Safety Report 9186248 (Version 3)
Quarter: 2013Q2

REPORT INFORMATION
  Report Type: Spontaneous
  Country: US (occurrence: US)
  Receive Date: 20130325
  Receipt Date: 20130626
  Transmission Date: 20140414
  Serious: Yes (Death, Other)
  Sender: FDA-Public Use
  Company Number: US-PFIZER INC-2013093136

PATIENT
  Age: 54 Year
  Sex: Female

DRUGS (1)
  1. REVATIO [Suspect]
     Indication: COAGULOPATHY
     Dosage: 20 MG, 3X/DAY (TID)
     Route: 048

REACTIONS (2)
  - Lung neoplasm malignant [Fatal]
  - Off label use [Unknown]
